FAERS Safety Report 5975873-1 (Version None)
Quarter: 2008Q4

REPORT INFORMATION
  Report Type: 
  Country: None (occurrence: None)
  Receive Date: 20081202
  Receipt Date: 20081126
  Transmission Date: 20090506
  Serious: Yes (Life-Threatening, Other)
  Sender: FDA-Public Use
  Company Number: B0547906A

PATIENT
  Sex: Female

DRUGS (1)
  1. GLAZIDIM [Suspect]
     Indication: PROPHYLAXIS
     Route: 065

REACTIONS (2)
  - HYPERSENSITIVITY [None]
  - PRODUCT QUALITY ISSUE [None]
